FAERS Safety Report 7007186-3 (Version None)
Quarter: 2010Q3

REPORT INFORMATION
  Report Type: 
  Country: None (occurrence: None)
  Receive Date: 20100922
  Receipt Date: 20100906
  Transmission Date: 20110219
  Serious: No
  Sender: FDA-Public Use
  Company Number: US-B.I. PHARMACEUTICALS,INC./RIDGEFIELD-2010-BP-10153BP

PATIENT
  Sex: Female

DRUGS (4)
  1. CATAPRES [Suspect]
     Indication: HYPERTENSION
     Dosage: 0.4 MG
     Route: 048
     Dates: start: 20000101
  2. TWYNSTA [Concomitant]
     Indication: HYPERTENSION
     Dates: start: 20100601
  3. TWYNSTA [Concomitant]
  4. TWYNSTA [Concomitant]

REACTIONS (5)
  - AGGRESSION [None]
  - DEPRESSION [None]
  - MOOD ALTERED [None]
  - PRURITUS GENERALISED [None]
  - SKIN LESION [None]
